FAERS Safety Report 11093456 (Version 5)
Quarter: 2015Q2

REPORT INFORMATION
  Report Type: Spontaneous
  Country: JP (occurrence: JP)
  Receive Date: 20150506
  Receipt Date: 20150618
  Transmission Date: 20150821
  Serious: Yes (Death)
  Sender: FDA-Public Use
  Company Number: JP-PFIZER INC-2015152289

PATIENT
  Age: 47 Year
  Sex: Male
  Weight: 29 kg

DRUGS (11)
  1. ALEVIATIN [Concomitant]
     Active Substance: PHENYTOIN SODIUM
     Dosage: 1.2 G, 3X/DAY
     Route: 048
     Dates: end: 20150417
  2. FOSPHENYTOIN SODIUM. [Suspect]
     Active Substance: FOSPHENYTOIN SODIUM
     Indication: EPILEPSY
     Dosage: 187.5 MG, DAILY
     Route: 042
     Dates: start: 20150417, end: 20150419
  3. GASTER [Concomitant]
     Active Substance: FAMOTIDINE
     Indication: UPPER GASTROINTESTINAL HAEMORRHAGE
     Dosage: 20 MG, 2X/DAY
     Route: 042
     Dates: start: 20150417, end: 20150419
  4. KN NO.3 [Concomitant]
     Indication: FLUID REPLACEMENT
     Dosage: 500 ML, DAILY
     Route: 042
     Dates: start: 20150418, end: 20150419
  5. EXCEGRAN [Concomitant]
     Active Substance: ZONISAMIDE
     Dosage: 100 MG, 3X/DAY
     Route: 048
  6. POTACOL R [Concomitant]
     Indication: FLUID REPLACEMENT
     Dosage: 500 ML, DAILY
     Route: 042
     Dates: start: 20150417, end: 20150419
  7. ADONA [Concomitant]
     Active Substance: CARBAZOCHROME SODIUM SULFONATE
     Indication: UPPER GASTROINTESTINAL HAEMORRHAGE
     Dosage: 100 MG, 1X/DAY
     Route: 042
     Dates: start: 20150417, end: 20150419
  8. DEPAKENE [Concomitant]
     Active Substance: VALPROIC ACID
     Dosage: 1 G, 2X/DAY
     Route: 048
     Dates: end: 20150417
  9. EXCEGRAN [Concomitant]
     Active Substance: ZONISAMIDE
     Dosage: 3 DF, 3X/DAY
     Route: 048
     Dates: end: 20150417
  10. LANDSEN [Concomitant]
     Active Substance: CLONAZEPAM
     Dosage: 1.25 G, DAILY
     Route: 048
     Dates: end: 20150417
  11. BFLUID [Concomitant]
     Active Substance: AMINO ACIDS\DEXTROSE\ELECTROLYTES NOS\VITAMINS
     Indication: FLUID REPLACEMENT
     Dosage: 500 ML, DAILY
     Route: 042
     Dates: start: 20150417, end: 20150419

REACTIONS (2)
  - Disease progression [Fatal]
  - Upper gastrointestinal haemorrhage [Fatal]

NARRATIVE: CASE EVENT DATE: 20150420
